FAERS Safety Report 20308423 (Version 2)
Quarter: 2022Q1

REPORT INFORMATION
  Report Type: Report from Study
  Country: GB (occurrence: GB)
  Receive Date: 20220107
  Receipt Date: 20220112
  Transmission Date: 20220423
  Serious: Yes (Other)
  Sender: FDA-Public Use
  Company Number: GB-NOVARTISPH-NVSC2021GB264162

PATIENT
  Sex: Female

DRUGS (1)
  1. ERELZI [Suspect]
     Active Substance: ETANERCEPT-SZZS
     Indication: Product used for unknown indication
     Dosage: 50 MG, QW
     Route: 065

REACTIONS (8)
  - Cerebrovascular accident [Unknown]
  - Accident [Unknown]
  - Malaise [Unknown]
  - Fall [Unknown]
  - Nerve injury [Unknown]
  - Movement disorder [Unknown]
  - Restless legs syndrome [Unknown]
  - Headache [Unknown]
